FAERS Safety Report 6653438-6 (Version None)
Quarter: 2010Q1

REPORT INFORMATION
  Report Type: 
  Country: None (occurrence: None)
  Receive Date: 20100326
  Receipt Date: 20100317
  Transmission Date: 20100710
  Serious: Yes (Hospitalization)
  Sender: FDA-Public Use
  Company Number: US-JNJFOC-20100305624

PATIENT
  Sex: Female
  Weight: 90.72 kg

DRUGS (3)
  1. FENTANYL-100 [Suspect]
     Indication: BACK PAIN
     Route: 062
  2. FENTANYL CITRATE [Suspect]
     Indication: BACK PAIN
     Route: 062
  3. FENTANYL CITRATE [Suspect]
     Route: 062

REACTIONS (10)
  - ABNORMAL LOSS OF WEIGHT [None]
  - CARDIAC OPERATION [None]
  - CORONARY ARTERY BYPASS [None]
  - DRUG DOSE OMISSION [None]
  - EATING DISORDER [None]
  - FEELING ABNORMAL [None]
  - HOSPITALISATION [None]
  - NAUSEA [None]
  - TREATMENT NONCOMPLIANCE [None]
  - VOMITING [None]
